FAERS Safety Report 9009445 (Version 1)
Quarter: 2013Q1

REPORT INFORMATION
  Report Type: Spontaneous
  Country: US (occurrence: US)
  Receive Date: 20130112
  Receipt Date: 20130112
  Transmission Date: 20140127
  Serious: Yes (Other)
  Sender: FDA-Public Use
  Company Number: US-009507513-0901USA02171

PATIENT
  Sex: Male
  Weight: 32.66 kg

DRUGS (2)
  1. SINGULAIR [Suspect]
     Indication: MULTIPLE ALLERGIES
     Dosage: 5 MG, QD
     Route: 048
  2. ZYRTEC [Suspect]
     Dosage: 10 MG, QD
     Route: 048

REACTIONS (4)
  - Abnormal behaviour [Unknown]
  - Affective disorder [Unknown]
  - Aggression [Unknown]
  - Physical assault [Unknown]
